FAERS Safety Report 4452022-2 (Version None)
Quarter: 2004Q3

REPORT INFORMATION
  Report Type: 
  Country: None (occurrence: None)
  Receive Date: 20040915
  Receipt Date: 20040915
  Transmission Date: 20050211
  Serious: Yes (Hospitalization)
  Sender: FDA-Public Use
  Company Number: None

PATIENT
  Age: 65 Year
  Sex: Male
  Weight: 122.7 kg

DRUGS (8)
  1. ASPIRIN [Suspect]
     Indication: CARDIAC DISORDER
     Dosage: 325 MG DAILY CHRONIC
  2. SPIRONOLACTONE [Concomitant]
  3. ALBUTEROL [Concomitant]
  4. AVAPRO [Concomitant]
  5. ADVAIR DISKUS 100/50 [Concomitant]
  6. PINDOLOL [Concomitant]
  7. LASIX [Concomitant]
  8. POTASSIUM [Concomitant]

REACTIONS (3)
  - DIZZINESS [None]
  - GASTRIC ULCER [None]
  - GASTROINTESTINAL HAEMORRHAGE [None]
